FAERS Safety Report 19140783 (Version 1)
Quarter: 2021Q2

REPORT INFORMATION
  Report Type: Spontaneous
  Country: CA (occurrence: CA)
  Receive Date: 20210415
  Receipt Date: 20210415
  Transmission Date: 20210717
  Serious: Yes (Hospitalization, Other)
  Sender: FDA-Public Use
  Company Number: CA-SAMSUNG BIOEPIS-SB-2021-09138

PATIENT
  Age: 23 Year
  Sex: Male
  Weight: 73 kg

DRUGS (5)
  1. INFLIXIMAB [Suspect]
     Active Substance: INFLIXIMAB
     Indication: COLITIS ULCERATIVE
     Route: 042
  2. ADVIL [Concomitant]
     Active Substance: IBUPROFEN
     Indication: PRODUCT USED FOR UNKNOWN INDICATION
     Dosage: UNKNOWN
     Route: 048
  3. CIPROFLOXACIN. [Concomitant]
     Active Substance: CIPROFLOXACIN
     Indication: PRODUCT USED FOR UNKNOWN INDICATION
     Dosage: UNKNOWN
     Route: 065
  4. FLAGYL [Concomitant]
     Active Substance: METRONIDAZOLE\METRONIDAZOLE HYDROCHLORIDE
     Indication: PRODUCT USED FOR UNKNOWN INDICATION
     Dosage: UNKNOWN
     Route: 065
  5. VYVANSE [Concomitant]
     Active Substance: LISDEXAMFETAMINE DIMESYLATE
     Indication: PRODUCT USED FOR UNKNOWN INDICATION
     Dosage: UNKNOWN
     Route: 065

REACTIONS (25)
  - Feeling abnormal [Recovered/Resolved]
  - Renal impairment [Recovered/Resolved]
  - Tremor [Recovered/Resolved]
  - Weight increased [Recovered/Resolved]
  - Inappropriate schedule of product administration [Recovered/Resolved]
  - Muscle spasms [Recovered/Resolved]
  - Drug level below therapeutic [Recovered/Resolved]
  - Feeling cold [Recovered/Resolved]
  - Product use issue [Recovered/Resolved]
  - Body temperature increased [Recovered/Resolved]
  - Dyspnoea [Recovered/Resolved]
  - Feeling hot [Recovered/Resolved]
  - Chills [Recovered/Resolved]
  - Heart rate abnormal [Recovered/Resolved]
  - Condition aggravated [Recovered/Resolved]
  - Flushing [Recovered/Resolved]
  - Infusion site pain [Recovered/Resolved]
  - Nausea [Recovered/Resolved]
  - Off label use [Recovered/Resolved]
  - Intentional product use issue [Recovered/Resolved]
  - Chest discomfort [Recovered/Resolved]
  - Defaecation urgency [Recovered/Resolved]
  - Dehydration [Recovered/Resolved]
  - Throat tightness [Recovered/Resolved]
  - Visual impairment [Recovered/Resolved]
